FAERS Safety Report 5357816-7 (Version None)
Quarter: 2007Q2

REPORT INFORMATION
  Report Type: 
  Country: None (occurrence: None)
  Receive Date: 20070530
  Receipt Date: 20061005
  Transmission Date: 20071010
  Serious: Yes (Hospitalization)
  Sender: FDA-Public Use
  Company Number: US200609000563

PATIENT
  Age: 24 Year
  Sex: Male
  Weight: 125.6 kg

DRUGS (1)
  1. ZYPREXA [Suspect]
     Indication: BIPOLAR DISORDER
     Dosage: ORAL
     Route: 048
     Dates: start: 19980101, end: 20010101

REACTIONS (4)
  - DIABETES MELLITUS [None]
  - HYPOAESTHESIA [None]
  - METABOLIC DISORDER [None]
  - OBESITY [None]
